FAERS Safety Report 6088858-4 (Version None)
Quarter: 2009Q1

REPORT INFORMATION
  Report Type: 
  Country: None (occurrence: None)
  Receive Date: 20090224
  Receipt Date: 20090210
  Transmission Date: 20090719
  Serious: Yes (Other)
  Sender: FDA-Public Use
  Company Number: PHHY2009JP05129

PATIENT
  Sex: Male
  Weight: 52 kg

DRUGS (7)
  1. DIOVAN [Suspect]
     Indication: HYPERTENSION
     Dosage: 40 MG ONCE DAILY
     Route: 048
     Dates: start: 20071219, end: 20080226
  2. DIOVAN [Suspect]
     Dosage: 80 MG ONCE DAILY
     Route: 048
     Dates: start: 20080227
  3. AMLODIN [Concomitant]
     Indication: HYPERTENSION
     Dosage: UNK
     Route: 048
     Dates: start: 20070820
  4. HUMALOG [Concomitant]
     Dosage: 3 IU
     Dates: start: 20010501
  5. HUMALOG MIX [Concomitant]
     Dosage: UNK
     Dates: start: 20010501
  6. KINEDAK [Concomitant]
     Dosage: 9 DF, UNK
     Route: 048
     Dates: start: 20070701
  7. MEXITIL [Concomitant]
     Dosage: 4 DF, UNK
     Route: 048
     Dates: start: 20070701

REACTIONS (1)
  - GLUCOSE URINE PRESENT [None]
